FAERS Safety Report 10861676 (Version 2)
Quarter: 2015Q3

REPORT INFORMATION
  Report Type: Spontaneous
  Country: US (occurrence: US)
  Receive Date: 20150224
  Receipt Date: 20150805
  Transmission Date: 20151125
  Serious: Yes (Hospitalization, Other)
  Sender: FDA-Public Use
  Company Number: US-RB-073297-15

PATIENT
  Age: 62 Year
  Sex: Male
  Weight: 122 kg

DRUGS (7)
  1. DABIGATRAN ETEXILATE 150MG CAPSULE [Concomitant]
     Indication: PRODUCT USED FOR UNKNOWN INDICATION
     Route: 048
  2. LISINOPRIL 5MG TABLET [Concomitant]
     Indication: PRODUCT USED FOR UNKNOWN INDICATION
     Route: 048
  3. MULTIVITAMIN TABLET [Concomitant]
     Indication: PRODUCT USED FOR UNKNOWN INDICATION
     Route: 048
  4. MUCINEX DM MAXIMUM STRENGTH [Suspect]
     Active Substance: DEXTROMETHORPHAN HYDROBROMIDE\GUAIFENESIN
     Indication: PRODUCT USED FOR UNKNOWN INDICATION
     Dosage: AMOUNT USED: 3
     Route: 065
  5. TOPROL XL 100MG TABLET EXTENDED RELEASE [Concomitant]
     Indication: PRODUCT USED FOR UNKNOWN INDICATION
     Route: 048
  6. ASPIRIN 81MG TABLET DELAYED RELEASE [Concomitant]
     Indication: PRODUCT USED FOR UNKNOWN INDICATION
     Route: 048
  7. DIGOXIN 250MCG TABLET [Concomitant]
     Indication: PRODUCT USED FOR UNKNOWN INDICATION
     Route: 048

REACTIONS (10)
  - Pulmonary hypertension [Unknown]
  - Respiratory tract infection [Unknown]
  - Ventricular tachycardia [Recovered/Resolved]
  - Arrhythmia [Unknown]
  - Dyspnoea [Unknown]
  - Palpitations [Recovered/Resolved]
  - Apparent death [Recovered/Resolved]
  - Cardiac arrest [Unknown]
  - Atrial fibrillation [Unknown]
  - Congestive cardiomyopathy [Recovered/Resolved]

NARRATIVE: CASE EVENT DATE: 20120716
